FAERS Safety Report 4295051-4 (Version None)
Quarter: 2004Q1

REPORT INFORMATION
  Report Type: 
  Country: None (occurrence: None)
  Receive Date: 20040213
  Receipt Date: 20040128
  Transmission Date: 20041129
  Serious: Yes (Hospitalization)
  Sender: FDA-Public Use
  Company Number: A-US2002-00952

PATIENT
  Age: 58 Year
  Sex: Male
  Weight: 63 kg

DRUGS (18)
  1. TRACLEER [Suspect]
     Indication: PULMONARY HYPERTENSION
     Dosage: SEE IMAGE
     Route: 048
     Dates: start: 20020521, end: 20020930
  2. TRACLEER [Suspect]
     Indication: PULMONARY HYPERTENSION
     Dosage: SEE IMAGE
     Route: 048
     Dates: start: 20021003
  3. ATARAX [Concomitant]
  4. SYNTHROID [Concomitant]
  5. LASIX [Concomitant]
  6. POTASSIUM SUPPLEMENT (POTASSIUM) [Concomitant]
  7. PROTONIX [Concomitant]
  8. PREDNISONE [Concomitant]
  9. ADALAT [Concomitant]
  10. ATACAND [Concomitant]
  11. MULTI-VITAMIN [Concomitant]
  12. VITAMIN B12 [Concomitant]
  13. VITAMIN C (ASCORBIC ACID) [Concomitant]
  14. LEXAPRO [Concomitant]
  15. SINGULAIR [Concomitant]
  16. ADVAIR DISKUS 100/50 [Concomitant]
  17. HUMIBID LAD [Concomitant]
  18. THEO-DUR [Concomitant]

REACTIONS (25)
  - ALANINE AMINOTRANSFERASE INCREASED [None]
  - AORTIC VALVE INCOMPETENCE [None]
  - ASPARTATE AMINOTRANSFERASE INCREASED [None]
  - ASTHMA [None]
  - BLOOD LACTATE DEHYDROGENASE INCREASED [None]
  - BRONCHITIS [None]
  - BRONCHOSPASM [None]
  - CARDIAC FAILURE CONGESTIVE [None]
  - COLONIC POLYP [None]
  - DEPRESSION [None]
  - DRUG INEFFECTIVE [None]
  - FAECAL OCCULT BLOOD POSITIVE [None]
  - GAMMA-GLUTAMYLTRANSFERASE INCREASED [None]
  - GASTROINTESTINAL ARTERIOVENOUS MALFORMATION [None]
  - HAEMORRHOIDS [None]
  - HEPATIC ENZYME INCREASED [None]
  - IRON DEFICIENCY ANAEMIA [None]
  - MITRAL VALVE INCOMPETENCE [None]
  - PERICARDIAL EFFUSION [None]
  - PULMONARY CONGESTION [None]
  - PULMONARY HYPERTENSION [None]
  - PULMONARY VALVE INCOMPETENCE [None]
  - PYREXIA [None]
  - SPUTUM DISCOLOURED [None]
  - TRICUSPID VALVE INCOMPETENCE [None]
